FAERS Safety Report 19685536 (Version 1)
Quarter: 2021Q3

REPORT INFORMATION
  Report Type: Spontaneous
  Country: US (occurrence: US)
  Receive Date: 20210810
  Receipt Date: 20210810
  Transmission Date: 20211014
  Serious: Yes (Hospitalization)
  Sender: FDA-Public Use
  Company Number: None

PATIENT
  Age: 61 Year
  Sex: Male
  Weight: 79.38 kg

DRUGS (4)
  1. FINASTERIDE. [Concomitant]
     Active Substance: FINASTERIDE
  2. MULTUVITAMINS?KROGER MENS COMPLETE [Concomitant]
  3. IMIQUIMOD CREAM 5% [Suspect]
     Active Substance: IMIQUIMOD
     Indication: SKIN CANCER
     Dosage: ?          QUANTITY:1 DF DOSAGE FORM;?
     Route: 058
     Dates: start: 20210606, end: 20210609
  4. CLOBETASOL OINT [Concomitant]

REACTIONS (10)
  - Burning sensation [None]
  - Headache [None]
  - Swelling [None]
  - Vertigo [None]
  - Dizziness [None]
  - Pruritus [None]
  - Erythema [None]
  - Ear swelling [None]
  - Blister [None]
  - Pain [None]

NARRATIVE: CASE EVENT DATE: 20210610
